FAERS Safety Report 8927088 (Version 3)
Quarter: 2013Q1

REPORT INFORMATION
  Report Type: Spontaneous
  Country: CN (occurrence: CN)
  Receive Date: 20121127
  Receipt Date: 20130130
  Transmission Date: 20140127
  Serious: Yes (Death)
  Sender: FDA-Public Use
  Company Number: CN-ROCHE-1159477

PATIENT
  Age: 53 Year
  Sex: Female

DRUGS (1)
  1. CEFTRIAXONE SODIUM [Suspect]
     Indication: URINARY TRACT INFECTION
     Dosage: ADDED TO 100 ML OF 0.9% SODIUM CHLORIDE INJECTION LIQUID
     Route: 041

REACTIONS (4)
  - Haemolysis [Fatal]
  - Renal failure [Fatal]
  - Cardio-respiratory arrest [Fatal]
  - Anaphylactic reaction [Fatal]
